FAERS Safety Report 11133541 (Version 3)
Quarter: 2015Q3

REPORT INFORMATION
  Report Type: Spontaneous
  Country: US (occurrence: US)
  Receive Date: 20150523
  Receipt Date: 20150725
  Transmission Date: 20151125
  Serious: Yes (Congenital Anomaly, Other)
  Sender: FDA-Public Use
  Company Number: US-APOTEX-2015AP007878

PATIENT
  Age: 0 Day
  Sex: Female
  Weight: 2.7 kg

DRUGS (1)
  1. PAXIL [Suspect]
     Active Substance: PAROXETINE HYDROCHLORIDE
     Indication: DEPRESSION
     Dosage: UNK
     Route: 064

REACTIONS (5)
  - Developmental delay [Unknown]
  - Foetal exposure during pregnancy [Unknown]
  - Pierre Robin syndrome [Unknown]
  - Cleft lip and palate [Unknown]
  - Micrognathia [Unknown]

NARRATIVE: CASE EVENT DATE: 20040907
